FAERS Safety Report 4444714-6 (Version None)
Quarter: 2004Q3

REPORT INFORMATION
  Report Type: 
  Country: None (occurrence: None)
  Receive Date: 20040902
  Receipt Date: 20040820
  Transmission Date: 20050211
  Serious: Yes (Other)
  Sender: FDA-Public Use
  Company Number: SUS1-2004-00494

PATIENT
  Age: 15 Year
  Sex: Female
  Weight: 44 kg

DRUGS (1)
  1. CARBATROL [Suspect]
     Indication: CONVULSION
     Dosage: 300 MG, 2X/DAY; BID
     Dates: start: 20040614, end: 20040616

REACTIONS (1)
  - CONVULSION [None]
